FAERS Safety Report 24333236 (Version 2)
Quarter: 2024Q4

REPORT INFORMATION
  Report Type: Spontaneous
  Country: JP (occurrence: JP)
  Receive Date: 20240918
  Receipt Date: 20241001
  Transmission Date: 20250115
  Serious: Yes (Hospitalization, Other)
  Sender: Phathom Pharmaceuticals
  Company Number: JP-PHATHOM PHARMACEUTICALS INC.-2024PHT00878

PATIENT
  Age: 9 Decade
  Sex: Female

DRUGS (1)
  1. VONOPRAZAN FUMARATE [Suspect]
     Active Substance: VONOPRAZAN FUMARATE
     Indication: Gastrooesophageal reflux disease
     Dosage: UNK
     Route: 048
     Dates: end: 20240906

REACTIONS (3)
  - Hyponatraemia [Not Recovered/Not Resolved]
  - Altered state of consciousness [Unknown]
  - Hallucination [Unknown]

NARRATIVE: CASE EVENT DATE: 20240818
